FAERS Safety Report 19734716 (Version 1)
Quarter: 2021Q3

REPORT INFORMATION
  Report Type: Spontaneous
  Country: US (occurrence: US)
  Receive Date: 20210824
  Receipt Date: 20210824
  Transmission Date: 20211014
  Serious: Yes (Other)
  Sender: FDA-Public Use
  Company Number: US-ASTRAZENECA-2021A686951

PATIENT

DRUGS (2)
  1. TAGRISSO [Suspect]
     Active Substance: OSIMERTINIB
     Indication: NON-SMALL CELL LUNG CANCER
     Route: 048
     Dates: start: 201101
  2. CARAFATE [Concomitant]
     Active Substance: SUCRALFATE

REACTIONS (7)
  - Upper limb fracture [Unknown]
  - Lower limb fracture [Unknown]
  - Product dose omission issue [Unknown]
  - Fall [Unknown]
  - Insurance issue [Unknown]
  - Oral discomfort [Unknown]
  - Dyspepsia [Unknown]
